FAERS Safety Report 7387610 (Version 2)
Quarter: 2012Q4

REPORT INFORMATION
  Report Type: 
  Country: CA (occurrence: CA)
  Receive Date: 20100514
  Receipt Date: 20121126
  Transmission Date: 20130627
  Serious: Yes (Hospitalization, Other)
  Sender: FDA-Public Use
  Company Number: US-RANBAXY-2010US-33505

PATIENT
  Age: 34 Year
  Sex: Male

DRUGS (6)
  1. CARBAMAZEPINE [Suspect]
     Indication: COMPLEX PARTIAL SEIZURES
     Dosage: 1600 mg/day
     Route: 065
  2. ACETAMINOPHEN [Suspect]
     Indication: BACK PAIN
     Dosage: 2000 mg/day
     Route: 065
  3. ACETAMINOPHEN [Suspect]
     Indication: BACK PAIN
     Dosage: UNK
     Route: 065
  4. CLOBAZAM [Concomitant]
     Indication: COMPLEX PARTIAL SEIZURES
     Dosage: 10 mg/day
     Route: 065
  5. MESALAZINE [Concomitant]
     Indication: CROHN^S DISEASE
     Dosage: 4 g/day
     Route: 065
  6. METHOCARBAMOL [Concomitant]
     Indication: ANALGESIC THERAPY
     Dosage: UNK
     Route: 065

REACTIONS (11)
  - Acute hepatic failure [Recovering/Resolving]
  - Renal failure acute [Recovering/Resolving]
  - Drug interaction [Recovering/Resolving]
  - Toxicity to various agents [Recovering/Resolving]
  - Balance disorder [None]
  - Diplopia [None]
  - Tubulointerstitial nephritis [None]
  - Musculoskeletal pain [None]
  - Nystagmus [None]
  - Tremor [None]
  - Cerebellar syndrome [None]
